FAERS Safety Report 7412908-3 (Version None)
Quarter: 2011Q2

REPORT INFORMATION
  Report Type: 
  Country: None (occurrence: None)
  Receive Date: 20110404
  Receipt Date: 20110321
  Transmission Date: 20111010
  Serious: Yes (Hospitalization)
  Sender: FDA-Public Use
  Company Number: 029693

PATIENT
  Sex: Male
  Weight: 77 kg

DRUGS (2)
  1. CERTOLIZUMAB PEGOL (CERTOLIZUMAB PEGOL) [Suspect]
     Indication: RHEUMATOID ARTHRITIS
     Dosage: 200 MG 1X/2 WEEKS, CDP870-051, 400 MG 1X2/2 WEEKS, SUBCUTANEOUS
     Route: 058
     Dates: start: 20060109, end: 20060502
  2. CERTOLIZUMAB PEGOL (CERTOLIZUMAB PEGOL) [Suspect]
     Indication: RHEUMATOID ARTHRITIS
     Dosage: 200 MG 1X/2 WEEKS, CDP870-051, 400 MG 1X2/2 WEEKS, SUBCUTANEOUS
     Route: 058
     Dates: start: 20060502

REACTIONS (3)
  - GASTROENTERITIS [None]
  - DIVERTICULAR PERFORATION [None]
  - FOOD POISONING [None]
